FAERS Safety Report 13228483 (Version 1)
Quarter: 2017Q1

REPORT INFORMATION
  Report Type: Spontaneous
  Country: US (occurrence: US)
  Receive Date: 20170213
  Receipt Date: 20170213
  Transmission Date: 20170428
  Serious: No
  Sender: FDA-Public Use
  Company Number: US-ROCHE-1278696

PATIENT
  Sex: Male

DRUGS (5)
  1. PULMOZYME [Suspect]
     Active Substance: DORNASE ALFA
     Indication: PNEUMONITIS
  2. PULMOZYME [Suspect]
     Active Substance: DORNASE ALFA
     Indication: ATELECTASIS
  3. PULMOZYME [Suspect]
     Active Substance: DORNASE ALFA
     Indication: BRONCHIECTASIS
     Route: 065
  4. PULMOZYME [Suspect]
     Active Substance: DORNASE ALFA
     Indication: ASTHMA
  5. PULMOZYME [Suspect]
     Active Substance: DORNASE ALFA
     Indication: BRONCHITIS BACTERIAL

REACTIONS (3)
  - Dyspnoea [Not Recovered/Not Resolved]
  - Staphylococcal infection [Unknown]
  - Sputum purulent [Not Recovered/Not Resolved]
